FAERS Safety Report 19516000 (Version 3)
Quarter: 2021Q3

REPORT INFORMATION
  Report Type: Spontaneous
  Country: US (occurrence: US)
  Receive Date: 20210709
  Receipt Date: 20210831
  Transmission Date: 20211014
  Serious: No
  Sender: FDA-Public Use
  Company Number: US-ASTELLAS-2021US019625

PATIENT
  Sex: Male

DRUGS (2)
  1. MYRBETRIQ [Suspect]
     Active Substance: MIRABEGRON
     Indication: BLADDER DISORDER
  2. MYRBETRIQ [Suspect]
     Active Substance: MIRABEGRON
     Indication: BLADDER CANCER
     Dosage: 50 MG, ONCE DAILY (TOOK ONLY FOR 6 DAYS)
     Route: 065
     Dates: start: 202105, end: 202105

REACTIONS (3)
  - Back pain [Not Recovered/Not Resolved]
  - Diarrhoea [Recovering/Resolving]
  - Product use in unapproved indication [Unknown]
